FAERS Safety Report 19810404 (Version 1)
Quarter: 2021Q3

REPORT INFORMATION
  Report Type: Spontaneous
  Country: FR (occurrence: FR)
  Receive Date: 20210909
  Receipt Date: 20210909
  Transmission Date: 20211014
  Serious: Yes (Other)
  Sender: FDA-Public Use
  Company Number: FR-MYLANLABS-2021M1059083

PATIENT
  Age: 59 Year
  Sex: Female
  Weight: 106 kg

DRUGS (7)
  1. XYDALBA [Concomitant]
     Active Substance: DALBAVANCIN HYDROCHLORIDE
     Dosage: UNK
  2. METFORMINE                         /00082701/ [Concomitant]
     Active Substance: METFORMIN HYDROCHLORIDE
     Dosage: UNK
  3. ATENOLOL. [Concomitant]
     Active Substance: ATENOLOL
     Dosage: UNK
  4. CAPTOPRIL. [Concomitant]
     Active Substance: CAPTOPRIL
     Dosage: UNK
  5. PRAVASTATINE SODIUM ACCORD [Concomitant]
     Active Substance: PRAVASTATIN SODIUM
     Dosage: UNK
  6. BECLOMETASONE [Concomitant]
     Active Substance: BECLOMETHASONE DIPROPIONATE
     Dosage: UNK
  7. LINEZOLID. [Suspect]
     Active Substance: LINEZOLID
     Indication: INFECTION
     Dosage: 1200 MILLIGRAM, QD
     Route: 048
     Dates: start: 20210217

REACTIONS (2)
  - Condition aggravated [Not Recovered/Not Resolved]
  - Anaemia [Not Recovered/Not Resolved]

NARRATIVE: CASE EVENT DATE: 20210313
